FAERS Safety Report 6212136-3 (Version None)
Quarter: 2009Q2

REPORT INFORMATION
  Report Type: 
  Country: None (occurrence: None)
  Receive Date: 20090602
  Receipt Date: 20090530
  Transmission Date: 20091009
  Serious: Yes (Death)
  Sender: FDA-Public Use
  Company Number: PHHY2009MX21183

PATIENT
  Age: 77 Year
  Sex: Male

DRUGS (1)
  1. DIOVAN HCT [Suspect]
     Indication: HYPERTENSION
     Dosage: 1 DF (160/12.5 MG), QD
     Route: 048
     Dates: start: 20070801, end: 20090401

REACTIONS (1)
  - RESPIRATORY ARREST [None]
